FAERS Safety Report 8239436-X (Version None)
Quarter: 2012Q1

REPORT INFORMATION
  Report Type: 
  Country: None (occurrence: None)
  Receive Date: 20120326
  Receipt Date: 20120319
  Transmission Date: 20120608
  Serious: Yes (Life-Threatening, Hospitalization)
  Sender: FDA-Public Use
  Company Number: 2012SP014586

PATIENT
  Age: 26 Year
  Sex: Female

DRUGS (3)
  1. ADALAT [Suspect]
     Indication: THREATENED LABOUR
     Dosage: 60 MG;QD;PO
     Route: 048
     Dates: start: 20120113, end: 20120117
  2. SALBUMOL (SALBUTAMOL SULFATE) [Suspect]
     Indication: THREATENED LABOUR
     Dates: start: 20111201, end: 20120113
  3. CELESTENE CHRONODOSE (BETAMETHASONE SODIUM PHOSPHATE/ACETATE /00309501 [Suspect]
     Indication: THREATENED LABOUR
     Dosage: 12 MG;QD;IM
     Route: 030
     Dates: start: 20120113, end: 20120114

REACTIONS (6)
  - CHILLS [None]
  - PLEURAL EFFUSION [None]
  - MYALGIA [None]
  - ACUTE RESPIRATORY FAILURE [None]
  - PULMONARY OEDEMA [None]
  - MATERNAL EXPOSURE DURING PREGNANCY [None]
